FAERS Safety Report 6684093-7 (Version None)
Quarter: 2010Q2

REPORT INFORMATION
  Report Type: 
  Country: None (occurrence: None)
  Receive Date: 20100416
  Receipt Date: 20100405
  Transmission Date: 20101027
  Serious: Yes (Other)
  Sender: FDA-Public Use
  Company Number: US-WYE-H13106010

PATIENT
  Sex: Male
  Weight: 90.8 kg

DRUGS (6)
  1. EFFEXOR XR [Suspect]
     Indication: DEPRESSION
     Route: 048
     Dates: start: 20091201, end: 20091201
  2. EFFEXOR XR [Suspect]
     Indication: GENERALISED ANXIETY DISORDER
     Dosage: 37.5 MG, FREQUENCY UNKNOWN
     Route: 048
     Dates: start: 20100120
  3. EFFEXOR XR [Suspect]
     Route: 048
     Dates: start: 20100301
  4. TYLENOL PM [Concomitant]
     Dosage: UNKNOWN
  5. AMBIEN [Concomitant]
     Dosage: UNKNOWN
  6. ATIVAN [Concomitant]

REACTIONS (8)
  - APHASIA [None]
  - CONDITION AGGRAVATED [None]
  - DEPRESSION [None]
  - DRUG INEFFECTIVE [None]
  - DYSPHONIA [None]
  - EMOTIONAL DISORDER [None]
  - SUICIDAL IDEATION [None]
  - THROAT TIGHTNESS [None]
